FAERS Safety Report 9060439 (Version 2)
Quarter: 2013Q2

REPORT INFORMATION
  Report Type: Spontaneous
  Country: JP (occurrence: JP)
  Receive Date: 20130212
  Receipt Date: 20130611
  Transmission Date: 20140414
  Serious: Yes (Hospitalization)
  Sender: FDA-Public Use
  Company Number: JP-CELGENEUS-087-21880-13014999

PATIENT
  Age: 57 Year
  Sex: Female

DRUGS (3)
  1. REVLIMID [Suspect]
     Indication: PLASMA CELL MYELOMA
     Dosage: 25 MILLIGRAM
     Route: 048
     Dates: start: 20121211
  2. LENADEX [Suspect]
     Indication: PLASMA CELL MYELOMA
     Route: 048
  3. INAVIR [Suspect]
     Indication: INFLUENZA
     Route: 055
     Dates: start: 20130124

REACTIONS (3)
  - Cerebral haemorrhage [Unknown]
  - Platelet count decreased [Unknown]
  - Influenza [Unknown]
